FAERS Safety Report 7230221-4 (Version None)
Quarter: 2011Q1

REPORT INFORMATION
  Report Type: 
  Country: None (occurrence: None)
  Receive Date: 20110118
  Receipt Date: 20110111
  Transmission Date: 20110831
  Serious: No
  Sender: FDA-Public Use
  Company Number: US-PFIZER INC-2011008107

PATIENT
  Age: 46 Year
  Sex: Female
  Weight: 48.98 kg

DRUGS (1)
  1. ADVIL [Suspect]
     Indication: HEADACHE
     Dosage: 2 TAB, ONE TIME
     Route: 048
     Dates: start: 20110103, end: 20110103

REACTIONS (1)
  - SENSATION OF FOREIGN BODY [None]
